FAERS Safety Report 22092131 (Version 2)
Quarter: 2023Q2

REPORT INFORMATION
  Report Type: Spontaneous
  Country: AR (occurrence: AR)
  Receive Date: 20230314
  Receipt Date: 20230505
  Transmission Date: 20230722
  Serious: Yes (Hospitalization, Other)
  Sender: FDA-Public Use
  Company Number: AR-PFIZER INC-PV202300044338

PATIENT
  Age: 41 Year
  Sex: Male

DRUGS (1)
  1. ENBREL [Suspect]
     Active Substance: ETANERCEPT
     Indication: Rheumatoid arthritis
     Dosage: UNK
     Route: 065
     Dates: start: 202105, end: 202111

REACTIONS (7)
  - Gastrostomy [Unknown]
  - Inguinal hernia [Unknown]
  - Intestinal perforation [Unknown]
  - Abdominal infection [Unknown]
  - Muscular weakness [Unknown]
  - Therapeutic product effect incomplete [Unknown]
  - Muscle atrophy [Unknown]

NARRATIVE: CASE EVENT DATE: 20210101
